FAERS Safety Report 8074016-0 (Version None)
Quarter: 2011Q4

REPORT INFORMATION
  Report Type: 
  Country: None (occurrence: None)
  Receive Date: 20111221
  Receipt Date: 20110601
  Transmission Date: 20120403
  Serious: Yes (Hospitalization)
  Sender: FDA-Public Use
  Company Number: PHHY2011US20272

PATIENT
  Age: 57 Year
  Sex: Male
  Weight: 85.7 kg

DRUGS (1)
  1. EXJADE [Suspect]
     Indication: MINERAL METABOLISM DISORDER
     Dosage: 1000 MG, QD, ORAL
     Route: 048
     Dates: start: 20101130

REACTIONS (2)
  - SICKLE CELL ANAEMIA WITH CRISIS [None]
  - FULL BLOOD COUNT DECREASED [None]
